FAERS Safety Report 6889000-X (Version None)
Quarter: 2010Q3

REPORT INFORMATION
  Report Type: 
  Country: None (occurrence: None)
  Receive Date: 20100730
  Receipt Date: 20071204
  Transmission Date: 20110219
  Serious: No
  Sender: FDA-Public Use
  Company Number: US-PFIZER INC-2007085036

PATIENT
  Sex: Female

DRUGS (3)
  1. LIPITOR [Suspect]
  2. VYTORIN [Suspect]
  3. NIASPAN [Suspect]

REACTIONS (5)
  - FEELING HOT [None]
  - HYPERTENSION [None]
  - NAUSEA [None]
  - RASH ERYTHEMATOUS [None]
  - URTICARIA [None]
